FAERS Safety Report 5613551-9 (Version None)
Quarter: 2008Q1

REPORT INFORMATION
  Report Type: 
  Country: None (occurrence: None)
  Receive Date: 20080205
  Receipt Date: 20080125
  Transmission Date: 20080703
  Serious: Yes (Other)
  Sender: FDA-Public Use
  Company Number: FR-JNJFOC-20071006316

PATIENT
  Age: 24 Year
  Sex: Female

DRUGS (11)
  1. REMICADE [Suspect]
     Route: 042
  2. REMICADE [Suspect]
     Route: 042
  3. REMICADE [Suspect]
     Route: 042
  4. REMICADE [Suspect]
     Route: 042
  5. REMICADE [Suspect]
     Indication: RHEUMATOID ARTHRITIS
     Route: 042
  6. ENBREL [Concomitant]
     Indication: RHEUMATOID ARTHRITIS
  7. METHOTREXATE [Concomitant]
     Indication: RHEUMATOID ARTHRITIS
  8. TRAMADOL HCL [Concomitant]
     Indication: RHEUMATOID ARTHRITIS
  9. CELEBREX [Concomitant]
     Indication: RHEUMATOID ARTHRITIS
  10. MOTILIUM [Concomitant]
     Indication: NAUSEA
  11. IBUPROFEN [Concomitant]
     Indication: HEADACHE

REACTIONS (5)
  - HEADACHE [None]
  - INFECTION [None]
  - PARAESTHESIA [None]
  - TOXIC SKIN ERUPTION [None]
  - VASCULITIS [None]
